FAERS Safety Report 7624820-5 (Version None)
Quarter: 2011Q3

REPORT INFORMATION
  Report Type: 
  Country: None (occurrence: None)
  Receive Date: 20110720
  Receipt Date: 20110711
  Transmission Date: 20111222
  Serious: Yes (Hospitalization)
  Sender: FDA-Public Use
  Company Number: US-US-EMD SERONO, INC.-7070422

PATIENT
  Sex: Female

DRUGS (3)
  1. IBUPROFEN [Concomitant]
     Indication: MIGRAINE
  2. REBIF [Suspect]
     Indication: PRODUCT USED FOR UNKNOWN INDICATION
     Route: 058
     Dates: start: 20110705, end: 20110707
  3. IBUPROFEN [Concomitant]
     Indication: PREMEDICATION

REACTIONS (5)
  - GAIT DISTURBANCE [None]
  - VOMITING [None]
  - CHEST PAIN [None]
  - BODY TEMPERATURE INCREASED [None]
  - FATIGUE [None]
